FAERS Safety Report 24568567 (Version 1)
Quarter: 2024Q4

REPORT INFORMATION
  Report Type: Spontaneous
  Country: US (occurrence: US)
  Receive Date: 20241031
  Receipt Date: 20241031
  Transmission Date: 20250115
  Serious: No
  Sender: BAYER HEALTHCARE LLC
  Company Number: US-BAYER-2024A152921

PATIENT
  Age: 74 Year
  Sex: Female

DRUGS (4)
  1. ALEVE [Suspect]
     Active Substance: NAPROXEN SODIUM
     Indication: Arthralgia
     Dosage: 1 DF, QD
     Route: 048
     Dates: start: 20240918, end: 20240923
  2. ALEVE [Suspect]
     Active Substance: NAPROXEN SODIUM
     Indication: Pain
  3. ALEVE [Concomitant]
     Active Substance: NAPROXEN SODIUM
     Dosage: 2 DF, QD
     Route: 048
  4. TYLENOL [Concomitant]
     Active Substance: ACETAMINOPHEN

REACTIONS (1)
  - Therapeutic product ineffective [Unknown]
